FAERS Safety Report 20668595 (Version 1)
Quarter: 2022Q2

REPORT INFORMATION
  Report Type: Spontaneous
  Country: ES (occurrence: ES)
  Receive Date: 20220404
  Receipt Date: 20220404
  Transmission Date: 20220721
  Serious: Yes (Hospitalization, Other)
  Sender: FDA-Public Use
  Company Number: ES-EPICPHARMA-ES-2022EPCLIT00205

PATIENT
  Age: 2 Year
  Sex: Male

DRUGS (5)
  1. TIZANIDINE HYDROCHLORIDE [Suspect]
     Active Substance: TIZANIDINE HYDROCHLORIDE
     Indication: Muscle spasticity
     Dosage: 0.15 MG/KG/DAY
     Route: 048
  2. TIZANIDINE HYDROCHLORIDE [Suspect]
     Active Substance: TIZANIDINE HYDROCHLORIDE
     Dosage: 1.6 MG/KG/DAY
     Route: 048
  3. CLONAZEPAM [Concomitant]
     Active Substance: CLONAZEPAM
     Indication: Muscle spasticity
     Dosage: 0.3-0.4 MG
     Route: 048
  4. MONTELUKAST [Concomitant]
     Active Substance: MONTELUKAST SODIUM
     Route: 048
  5. NOREPINEPHRINE [Suspect]
     Active Substance: NOREPINEPHRINE
     Indication: Supportive care
     Route: 065

REACTIONS (5)
  - Cardiac failure [Recovered/Resolved]
  - Renal failure [Recovered/Resolved]
  - Overdose [Recovered/Resolved]
  - Hepatic failure [Recovered/Resolved]
  - Metabolic acidosis [Recovered/Resolved]
